FAERS Safety Report 8687154 (Version 3)
Quarter: 2012Q4

REPORT INFORMATION
  Report Type: 
  Country: AU (occurrence: AU)
  Receive Date: 20120727
  Receipt Date: 20121010
  Transmission Date: 20130627
  Serious: Yes (Hospitalization, Other)
  Sender: FDA-Public Use
  Company Number: PHHY2012AU061907

PATIENT
  Age: 23 Year
  Sex: Female

DRUGS (2)
  1. CLOZARIL [Suspect]
     Dosage: 150 mg, UNK
     Dates: start: 20020920, end: 20071005
  2. CLOZARIL [Suspect]
     Dosage: 300 mg, daily
     Route: 048
     Dates: start: 20110719, end: 201109

REACTIONS (6)
  - Myeloproliferative disorder [Unknown]
  - Acute psychosis [Unknown]
  - Tachycardia [Unknown]
  - Thrombocytosis [Recovered/Resolved]
  - White blood cell count increased [Unknown]
  - Neutrophil count increased [Unknown]
